FAERS Safety Report 25820756 (Version 2)
Quarter: 2025Q4

REPORT INFORMATION
  Report Type: Spontaneous
  Country: US (occurrence: US)
  Receive Date: 20250919
  Receipt Date: 20251029
  Transmission Date: 20260117
  Serious: No
  Sender: ELI LILLY AND COMPANY
  Company Number: US-ELI_LILLY_AND_COMPANY-US202509011048

PATIENT
  Age: 62 Year
  Sex: Female
  Weight: 71.202 kg

DRUGS (1)
  1. KISUNLA [Suspect]
     Active Substance: DONANEMAB-AZBT
     Indication: Cognitive disorder
     Dosage: UNK UNK, UNKNOWN
     Route: 065

REACTIONS (1)
  - Superficial siderosis of central nervous system [Recovered/Resolved]

NARRATIVE: CASE EVENT DATE: 20250318
